FAERS Safety Report 14799479 (Version 1)
Quarter: 2018Q2

REPORT INFORMATION
  Report Type: Spontaneous
  Country: US (occurrence: US)
  Receive Date: 20180424
  Receipt Date: 20180424
  Transmission Date: 20180711
  Serious: Yes (Life-Threatening, Hospitalization)
  Sender: FDA-Public Use
  Company Number: US-MYLANLABS-2018M1025174

PATIENT
  Age: 36 Year
  Sex: Male

DRUGS (1)
  1. LOPERAMIDE [Suspect]
     Active Substance: LOPERAMIDE
     Indication: PRODUCT USED FOR UNKNOWN INDICATION
     Dosage: 30-200 TABLETS
     Route: 048

REACTIONS (4)
  - Serotonin syndrome [Recovering/Resolving]
  - Cardiac arrest [Recovered/Resolved]
  - Drug abuse [Recovering/Resolving]
  - Intentional overdose [Recovering/Resolving]
